FAERS Safety Report 14333833 (Version 1)
Quarter: 2017Q4

REPORT INFORMATION
  Report Type: Spontaneous
  Country: US (occurrence: US)
  Receive Date: 20171227
  Receipt Date: 20171227
  Transmission Date: 20180321
  Serious: No
  Sender: FDA-Public Use
  Company Number: None

PATIENT
  Age: 57 Year
  Sex: Male

DRUGS (1)
  1. RASUVO [Suspect]
     Active Substance: METHOTREXATE SODIUM
     Indication: RHEUMATOID ARTHRITIS
     Dosage: DOSE - 25MG/.5ML
     Route: 058
     Dates: start: 20170914

REACTIONS (3)
  - Fatigue [None]
  - Headache [None]
  - Nasal congestion [None]

NARRATIVE: CASE EVENT DATE: 20171215
